FAERS Safety Report 10016432 (Version 4)
Quarter: 2014Q2

REPORT INFORMATION
  Report Type: Other
  Country: JP (occurrence: JP)
  Receive Date: 20140317
  Receipt Date: 20140620
  Transmission Date: 20141212
  Serious: Yes (Other)
  Sender: FDA-Public Use
  Company Number: JP-BRISTOL-MYERS SQUIBB COMPANY-19950633

PATIENT
  Age: 65 Year
  Sex: Male
  Weight: 75 kg

DRUGS (7)
  1. ERBITUX SOLN FOR INF 5MG/ML [Suspect]
     Indication: RECTAL CANCER
     Route: 041
     Dates: start: 20120712, end: 20121012
  2. ERBITUX SOLN FOR INF 5MG/ML [Suspect]
     Indication: COLORECTAL CANCER
     Route: 041
     Dates: start: 20120712, end: 20121012
  3. ALLEGRA [Concomitant]
     Indication: PRURITUS
     Route: 048
     Dates: start: 20120803, end: 20121119
  4. LAC-B [Concomitant]
     Route: 048
  5. POLARAMINE [Concomitant]
     Indication: PROPHYLAXIS
     Dosage: ALSO TOOK PO:2MG ON 12AUG12-12SEP12:42DAYS.TABS,
     Route: 041
     Dates: start: 20120712, end: 20121012
  6. POLARAMINE [Concomitant]
     Indication: PRURITUS
     Dosage: ALSO TOOK PO:2MG ON 12AUG12-12SEP12:42DAYS.TABS,
     Route: 041
     Dates: start: 20120712, end: 20121012
  7. CIMETIDINE INJ [Concomitant]
     Indication: PROPHYLAXIS
     Route: 041
     Dates: start: 20120712, end: 20121012

REACTIONS (3)
  - Purpura [Recovered/Resolved]
  - Renal disorder [Recovered/Resolved]
  - Pruritus [Recovered/Resolved]
